FAERS Safety Report 8519948-1 (Version None)
Quarter: 2012Q2

REPORT INFORMATION
  Report Type: 
  Country: None (occurrence: None)
  Receive Date: 20120406
  Receipt Date: 20090807
  Transmission Date: 20120825
  Serious: Yes (Hospitalization, Other)
  Sender: FDA-Public Use
  Company Number: PHEH2009US08974

PATIENT
  Age: 59 Year
  Sex: Male

DRUGS (6)
  1. TASIGNA [Suspect]
     Indication: CHRONIC MYELOID LEUKAEMIA
     Dosage: 400 MG, Q12H
  2. TOPROL-XL [Concomitant]
  3. CYMBALTA [Concomitant]
  4. PLAVIX [Concomitant]
  5. ZOLOFT [Concomitant]
  6. METHADONE HYDROCHLORIDE [Concomitant]

REACTIONS (3)
  - STENT PLACEMENT [None]
  - MYOCARDIAL INFARCTION [None]
  - RECTAL HAEMORRHAGE [None]
